FAERS Safety Report 19620889 (Version 1)
Quarter: 2021Q3

REPORT INFORMATION
  Report Type: Spontaneous
  Country: GB (occurrence: GB)
  Receive Date: 20210728
  Receipt Date: 20210728
  Transmission Date: 20211014
  Serious: Yes (Death, Hospitalization, Other)
  Sender: FDA-Public Use
  Company Number: GB-COVIS PHARMA GMBH-2021COV23445

PATIENT
  Age: 67 Year
  Sex: Male

DRUGS (5)
  1. DEXAMETHASONE. [Concomitant]
     Active Substance: DEXAMETHASONE
     Indication: PRODUCT USED FOR UNKNOWN INDICATION
     Dosage: 4 MG DAILY
     Dates: start: 20210626
  2. SANDOSTATIN LAR DEPOT [Suspect]
     Active Substance: OCTREOTIDE ACETATE
     Indication: NEUROENDOCRINE TUMOUR
     Dates: start: 202004
  3. OXYCODONE HYDROCHLORIDE. [Concomitant]
     Active Substance: OXYCODONE HYDROCHLORIDE
     Indication: PRODUCT USED FOR UNKNOWN INDICATION
     Dosage: 5 ML (EVERY 4 HOURS)
  4. TAMADOL [Concomitant]
     Active Substance: TRAMADOL HYDROCHLORIDE
     Indication: PRODUCT USED FOR UNKNOWN INDICATION
     Dosage: 2 DF ROUTE
  5. PRILOSEC [Suspect]
     Active Substance: OMEPRAZOLE MAGNESIUM
     Indication: PRODUCT USED FOR UNKNOWN INDICATION
     Route: 065
     Dates: start: 20210626

REACTIONS (12)
  - Dysarthria [Unknown]
  - Bell^s palsy [Unknown]
  - Seizure [Unknown]
  - Feeling abnormal [Unknown]
  - Erythema [Unknown]
  - Arthralgia [Recovered/Resolved]
  - Inappropriate schedule of product administration [Unknown]
  - Death [Fatal]
  - Loss of consciousness [Unknown]
  - Cerebrovascular accident [Unknown]
  - Flushing [Unknown]
  - Blood pressure diastolic increased [Unknown]

NARRATIVE: CASE EVENT DATE: 20210626
